FAERS Safety Report 7194084-8 (Version None)
Quarter: 2010Q4

REPORT INFORMATION
  Report Type: 
  Country: None (occurrence: None)
  Receive Date: 20101223
  Receipt Date: 20100930
  Transmission Date: 20110411
  Serious: No
  Sender: FDA-Public Use
  Company Number: US-AMGEN-TCS434806

PATIENT

DRUGS (4)
  1. ENBREL [Suspect]
     Indication: PSORIATIC ARTHROPATHY
     Dosage: 50 MG, QWK
     Route: 058
     Dates: start: 20100614
  2. METHOTREXATE SODIUM [Concomitant]
     Dosage: .8 ML, QWK
     Route: 058
     Dates: start: 20100602
  3. FOLIC ACID [Concomitant]
     Dosage: 1 MG, QD
     Route: 048
     Dates: start: 20091112
  4. CLOBETASOL [Concomitant]
     Dosage: UNK UNK, UNK
     Route: 061

REACTIONS (2)
  - ANGIOEDEMA [None]
  - SWELLING FACE [None]
